FAERS Safety Report 25727824 (Version 1)
Quarter: 2025Q3

REPORT INFORMATION
  Report Type: Spontaneous
  Country: US (occurrence: None)
  Receive Date: 20250826
  Receipt Date: 20250826
  Transmission Date: 20251021
  Serious: Yes (Hospitalization)
  Sender: FDA-CTU
  Company Number: None

PATIENT
  Sex: Male

DRUGS (1)
  1. WARFARIN [Suspect]
     Active Substance: WARFARIN

REACTIONS (10)
  - Haemorrhage [None]
  - Mental status changes [None]
  - Urinary tract infection [None]
  - Pathogen resistance [None]
  - International normalised ratio increased [None]
  - Prothrombin time prolonged [None]
  - Haematocrit decreased [None]
  - Escherichia infection [None]
  - Proteus infection [None]
  - Seizure [None]

NARRATIVE: CASE EVENT DATE: 20240116
